FAERS Safety Report 10495266 (Version 2)
Quarter: 2014Q4

REPORT INFORMATION
  Report Type: Spontaneous
  Country: GB (occurrence: GB)
  Receive Date: 20141003
  Receipt Date: 20141212
  Transmission Date: 20150528
  Serious: Yes (Other)
  Sender: FDA-Public Use
  Company Number: US-ASTRAZENECA-2014SE73830

PATIENT
  Age: 90 Year
  Sex: Female

DRUGS (6)
  1. ASPIRIN. [Concomitant]
     Active Substance: ASPIRIN
     Dosage: UNK
  2. ATORVASTATIN [Concomitant]
     Active Substance: ATORVASTATIN
  3. FELODIPINE. [Concomitant]
     Active Substance: FELODIPINE
  4. GLICLAZIDE [Concomitant]
     Active Substance: GLICLAZIDE
  5. ATENOLOL. [Concomitant]
     Active Substance: ATENOLOL
  6. CANDESARTAN [Suspect]
     Active Substance: CANDESARTAN
     Indication: PRODUCT USED FOR UNKNOWN INDICATION
     Route: 048

REACTIONS (7)
  - Atrial fibrillation [Unknown]
  - Renal impairment [Unknown]
  - Hyperglycaemia [Unknown]
  - Weight decreased [Unknown]
  - Choreoathetosis [Recovered/Resolved]
  - Polydipsia [Unknown]
  - Polyuria [Unknown]
